FAERS Safety Report 4328524-6 (Version None)
Quarter: 2004Q1

REPORT INFORMATION
  Report Type: 
  Country: None (occurrence: None)
  Receive Date: 20040331
  Receipt Date: 20040304
  Transmission Date: 20041129
  Serious: Yes (Death, Hospitalization, Other)
  Sender: FDA-Public Use
  Company Number: JP-MERCK-0403USA00760

PATIENT
  Age: 36 Month
  Sex: Male

DRUGS (2)
  1. COSMEGEN [Suspect]
     Indication: NEUROBLASTOMA
     Route: 042
  2. DEXAMETHASONE SODIUM PHOSPHATE [Concomitant]
     Indication: NEUROBLASTOMA
     Route: 042

REACTIONS (19)
  - AKINESIA [None]
  - ANAEMIA [None]
  - ARTHRALGIA [None]
  - CARDIAC FAILURE [None]
  - CARDIAC MURMUR [None]
  - CONSTIPATION [None]
  - DISSEMINATED INTRAVASCULAR COAGULATION [None]
  - DRUG INEFFECTIVE [None]
  - HALLUCINATION [None]
  - METASTASES TO BONE [None]
  - METASTASES TO BONE MARROW [None]
  - METASTASES TO LYMPH NODES [None]
  - NEOPLASM SWELLING [None]
  - NEUROBLASTOMA [None]
  - OEDEMA PERIPHERAL [None]
  - PAIN [None]
  - PATHOLOGICAL FRACTURE [None]
  - THROMBOCYTOPENIA [None]
  - TUMOUR HAEMORRHAGE [None]
